FAERS Safety Report 20749941 (Version 1)
Quarter: 2022Q2

REPORT INFORMATION
  Report Type: Spontaneous
  Country: US (occurrence: None)
  Receive Date: 20220425
  Receipt Date: 20220425
  Transmission Date: 20220721
  Serious: Yes (Other)
  Sender: FDA-Public Use
  Company Number: None

PATIENT
  Sex: Male

DRUGS (10)
  1. ENBREL [Suspect]
     Active Substance: ETANERCEPT
     Indication: Rheumatoid arthritis
     Dosage: OTHER FREQUENCY : SEE B.6 (PAGE 2);?
     Route: 058
     Dates: start: 20210923
  2. ATORVASTATIN TAB 10MG [Concomitant]
  3. CLINDAMYCIN PHOSPHATE [Concomitant]
     Active Substance: CLINDAMYCIN PHOSPHATE
  4. LECUCOVOR CA 10MG [Concomitant]
  5. LORATADINE TAB 10MG [Concomitant]
  6. LYRICA CAP 75MG [Concomitant]
  7. OTREXUP [Concomitant]
     Active Substance: METHOTREXATE
  8. PREDNISONE [Concomitant]
     Active Substance: PREDNISONE
  9. VITAMIN B-12 TAB 1000MCG [Concomitant]
  10. VITAMIN D3 CAP 5000UNIT [Concomitant]

REACTIONS (3)
  - Rheumatoid arthritis [None]
  - Loss of personal independence in daily activities [None]
  - Hernia [None]
